FAERS Safety Report 15228316 (Version 2)
Quarter: 2018Q3

REPORT INFORMATION
  Report Type: Spontaneous
  Country: US (occurrence: US)
  Receive Date: 20180801
  Receipt Date: 20180821
  Transmission Date: 20181010
  Serious: Yes (Hospitalization)
  Sender: FDA-Public Use
  Company Number: US-TEVA-2018-US-934784

PATIENT
  Age: 35 Year
  Sex: Male

DRUGS (1)
  1. PROPOFOL. [Suspect]
     Active Substance: PROPOFOL
     Indication: SEDATION
     Route: 041

REACTIONS (6)
  - Hypotension [Unknown]
  - Multiple organ dysfunction syndrome [Recovering/Resolving]
  - Hypertriglyceridaemia [Recovering/Resolving]
  - Propofol infusion syndrome [Recovering/Resolving]
  - Rhabdomyolysis [Unknown]
  - Pancreatitis acute [Recovering/Resolving]
